FAERS Safety Report 6264584-3 (Version None)
Quarter: 2009Q3

REPORT INFORMATION
  Report Type: 
  Country: None (occurrence: None)
  Receive Date: 20090710
  Receipt Date: 20090702
  Transmission Date: 20100115
  Serious: Yes (Other)
  Sender: FDA-Public Use
  Company Number: PHHY2009DK27223

PATIENT
  Sex: Female

DRUGS (8)
  1. EXELON [Suspect]
     Indication: DEMENTIA ALZHEIMER'S TYPE
     Dosage: 4.6 MG, UNK
     Route: 062
     Dates: start: 20090513, end: 20090611
  2. OXYCONTIN [Concomitant]
     Dosage: 10 MG/DAY
  3. OXYNORM [Concomitant]
     Dosage: 5 MG,PN
  4. FERRO DURETTER [Concomitant]
     Dosage: 100 MG/DAY
  5. FOLIMET [Concomitant]
  6. SEROQUEL [Concomitant]
  7. UNIKALK FORTE [Concomitant]
     Dosage: 1 TABLET TWICE DAILY
  8. ATENDRONAT [Concomitant]
     Dosage: 70 MG/DAY

REACTIONS (4)
  - AGGRESSION [None]
  - DELIRIUM [None]
  - HALLUCINATION, VISUAL [None]
  - PARANOIA [None]
